FAERS Safety Report 14405486 (Version 1)
Quarter: 2018Q1

REPORT INFORMATION
  Report Type: Spontaneous
  Country: US (occurrence: US)
  Receive Date: 20180118
  Receipt Date: 20180118
  Transmission Date: 20180509
  Serious: No
  Sender: FDA-Public Use
  Company Number: US-PFIZER INC-2018020675

PATIENT
  Age: 50 Year
  Sex: Female

DRUGS (1)
  1. ADVIL LIQUI-GELS [Suspect]
     Active Substance: IBUPROFEN
     Indication: FIBROMYALGIA
     Dosage: 200-400 MG ONCE OR TWICE A DAY

REACTIONS (8)
  - Fluid retention [Unknown]
  - Musculoskeletal stiffness [Unknown]
  - Chills [Unknown]
  - Muscle spasms [Unknown]
  - Drug ineffective [Unknown]
  - Tinnitus [Unknown]
  - Peripheral swelling [Unknown]
  - Withdrawal syndrome [Unknown]
